FAERS Safety Report 9331265 (Version 1)
Quarter: 2013Q2

REPORT INFORMATION
  Report Type: Spontaneous
  Country: NZ (occurrence: NZ)
  Receive Date: 20130605
  Receipt Date: 20130605
  Transmission Date: 20140414
  Serious: Yes (Other)
  Sender: FDA-Public Use
  Company Number: NZ-PFIZER INC-2013162196

PATIENT
  Sex: Female

DRUGS (6)
  1. GENOTROPIN [Suspect]
     Indication: HYPOPITUITARISM
     Dosage: 0.2 UNK, 1X/DAY
     Dates: start: 201302
  2. GENOTROPIN [Suspect]
     Dosage: 0.3 UNK, UNK
     Dates: start: 201303
  3. TRIMETHOPRIM [Suspect]
     Indication: URINARY TRACT INFECTION
     Dosage: SEVEN TABLETS
  4. PROVERA [Concomitant]
  5. THYROXINE [Concomitant]
  6. CORTISOL [Concomitant]

REACTIONS (5)
  - Urinary tract infection [Unknown]
  - Jaundice [Unknown]
  - Abdominal pain upper [Unknown]
  - Back pain [Unknown]
  - Diarrhoea [Unknown]
